FAERS Safety Report 8049353-6 (Version None)
Quarter: 2012Q1

REPORT INFORMATION
  Report Type: 
  Country: None (occurrence: None)
  Receive Date: 20120117
  Receipt Date: 20120112
  Transmission Date: 20120608
  Serious: Yes (Hospitalization, Other)
  Sender: FDA-Public Use
  Company Number: US-JNJFOC-20100300724

PATIENT
  Sex: Male

DRUGS (5)
  1. HYDROCODONE BITARTRATE [Concomitant]
     Indication: PAIN
     Route: 065
  2. LEVAQUIN [Suspect]
     Indication: SINUSITIS
     Route: 048
     Dates: start: 20071231
  3. DOXYCYCLINE HCL [Concomitant]
     Indication: PRODUCT USED FOR UNKNOWN INDICATION
     Route: 048
  4. LEVAQUIN [Suspect]
     Indication: PHARYNGITIS
     Route: 048
     Dates: start: 20071231
  5. CORTISONE ACETATE [Suspect]
     Indication: PAIN IN EXTREMITY
     Route: 065

REACTIONS (4)
  - PROCEDURAL COMPLICATION [None]
  - IMPAIRED HEALING [None]
  - TENDON RUPTURE [None]
  - MYALGIA [None]
